FAERS Safety Report 24525504 (Version 1)
Quarter: 2024Q4

REPORT INFORMATION
  Report Type: Report from Study
  Country: NL (occurrence: NL)
  Receive Date: 20241020
  Receipt Date: 20241020
  Transmission Date: 20250114
  Serious: Yes (Other)
  Sender: AUROBINDO
  Company Number: NL-AUROBINDO-AUR-APL-2024-051548

PATIENT
  Age: 67 Year
  Sex: Female

DRUGS (1)
  1. SIMVASTATIN [Suspect]
     Active Substance: SIMVASTATIN
     Indication: Product used for unknown indication
     Dosage: UNK (SIMVASTATIN STOPPED, NO SWITCH TO ANOTHER STATIN)
     Route: 065

REACTIONS (1)
  - Pulmonary toxicity [Unknown]
